FAERS Safety Report 24916676 (Version 1)
Quarter: 2025Q1

REPORT INFORMATION
  Report Type: Spontaneous
  Country: IR (occurrence: IR)
  Receive Date: 20250203
  Receipt Date: 20250203
  Transmission Date: 20250409
  Serious: Yes (Other)
  Sender: SANDOZ
  Company Number: IR-SANDOZ-SDZ2025IR005577

PATIENT
  Age: 8 Year
  Sex: Male

DRUGS (1)
  1. METHOTREXATE [Suspect]
     Active Substance: METHOTREXATE
     Indication: Chemotherapy
     Dosage: 12.5 MG AT MONTHLY INTERVALS
     Route: 037

REACTIONS (1)
  - Cauda equina syndrome [Recovering/Resolving]
